FAERS Safety Report 24030848 (Version 1)
Quarter: 2024Q2

REPORT INFORMATION
  Report Type: Spontaneous
  Country: IT (occurrence: IT)
  Receive Date: 20240628
  Receipt Date: 20240628
  Transmission Date: 20240716
  Serious: Yes (Death, Other)
  Sender: FDA-Public Use
  Company Number: IT-009507513-2406ITA008119

PATIENT
  Sex: Male

DRUGS (2)
  1. DORAVIRINE [Suspect]
     Active Substance: DORAVIRINE
     Indication: HIV infection
     Route: 048
     Dates: end: 20240331
  2. DOLUTEGRAVIR [Suspect]
     Active Substance: DOLUTEGRAVIR
     Indication: HIV infection
     Dates: end: 20240331

REACTIONS (1)
  - Death [Fatal]

NARRATIVE: CASE EVENT DATE: 20240331
